APPROVED DRUG PRODUCT: SPIRONOLACTONE
Active Ingredient: SPIRONOLACTONE
Strength: 25MG/5ML
Dosage Form/Route: SUSPENSION;ORAL
Application: A215572 | Product #001 | TE Code: AB
Applicant: AMNEAL PHARMACEUTICALS LLC
Approved: Sep 5, 2023 | RLD: No | RS: No | Type: RX